FAERS Safety Report 5262474-6 (Version None)
Quarter: 2007Q1

REPORT INFORMATION
  Report Type: 
  Country: None (occurrence: None)
  Receive Date: 20070312
  Receipt Date: 20070228
  Transmission Date: 20070707
  Serious: Yes (Hospitalization)
  Sender: FDA-Public Use
  Company Number: US-ROCHE-471434

PATIENT
  Age: 48 Year
  Sex: Female

DRUGS (5)
  1. CELLCEPT [Suspect]
     Indication: MULTIPLE SCLEROSIS
     Route: 065
     Dates: start: 20021115, end: 20060606
  2. CELLCEPT [Suspect]
     Route: 065
     Dates: start: 20060606, end: 20061115
  3. TYSABRI [Concomitant]
     Dosage: DOSAGE REPORTED AS SINGLE DOSE.
     Dates: start: 20060908, end: 20060908
  4. COPAXONE [Concomitant]
     Dates: start: 20000415, end: 20060602
  5. LEVOTHYROXINE SODIUM [Concomitant]
     Dates: start: 19990615

REACTIONS (11)
  - ALOPECIA [None]
  - DEHYDRATION [None]
  - HAEMOPTYSIS [None]
  - LUNG ABSCESS [None]
  - ORTHOSTATIC HYPOTENSION [None]
  - PLEURAL EFFUSION [None]
  - PNEUMONIA [None]
  - PYREXIA [None]
  - STREPTOCOCCAL INFECTION [None]
  - VOMITING [None]
  - WEGENER'S GRANULOMATOSIS [None]
